FAERS Safety Report 7802144-0 (Version None)
Quarter: 2011Q4

REPORT INFORMATION
  Report Type: 
  Country: None (occurrence: None)
  Receive Date: 20111007
  Receipt Date: 20110929
  Transmission Date: 20120403
  Serious: Yes (Other)
  Sender: FDA-Public Use
  Company Number: AU-JNJFOC-20110900203

PATIENT
  Sex: Female

DRUGS (8)
  1. STELARA [Suspect]
     Route: 058
     Dates: start: 20110710
  2. STELARA [Suspect]
     Route: 058
     Dates: start: 20110123
  3. CELEBREX [Concomitant]
     Indication: PRODUCT USED FOR UNKNOWN INDICATION
     Route: 065
  4. ANTIHYPERTENSIVE DRUG (NOS) [Concomitant]
     Indication: BLOOD PRESSURE
     Route: 065
  5. DIFORMIN [Concomitant]
     Indication: PRODUCT USED FOR UNKNOWN INDICATION
     Route: 065
  6. STELARA [Suspect]
     Indication: PSORIASIS
     Route: 058
     Dates: start: 20101226
  7. STELARA [Suspect]
     Route: 058
     Dates: start: 20110417
  8. GLYADE [Concomitant]
     Indication: PRODUCT USED FOR UNKNOWN INDICATION
     Route: 065

REACTIONS (3)
  - LOWER RESPIRATORY TRACT INFECTION [None]
  - HOT FLUSH [None]
  - GASTROENTERITIS [None]
